FAERS Safety Report 18029161 (Version 6)
Quarter: 2021Q4

REPORT INFORMATION
  Report Type: Report from Study
  Country: US (occurrence: US)
  Receive Date: 20200715
  Receipt Date: 20211116
  Transmission Date: 20220303
  Serious: No
  Sender: FDA-Public Use
  Company Number: None

PATIENT
  Age: 42 Year
  Sex: Female

DRUGS (3)
  1. GILENYA [Suspect]
     Active Substance: FINGOLIMOD HYDROCHLORIDE
     Indication: Relapsing-remitting multiple sclerosis
     Dosage: 0.5 MG, QD
     Route: 048
     Dates: start: 20200710
  2. GILENYA [Suspect]
     Active Substance: FINGOLIMOD HYDROCHLORIDE
     Indication: Multiple sclerosis
     Dosage: 0.5 MG, QD
     Route: 048
  3. GILENYA [Suspect]
     Active Substance: FINGOLIMOD HYDROCHLORIDE
     Dosage: 0.5 MG, QD
     Route: 048
     Dates: start: 20200710

REACTIONS (12)
  - Cognitive disorder [Unknown]
  - Memory impairment [Unknown]
  - Band sensation [Unknown]
  - Cough [Unknown]
  - Myalgia [Unknown]
  - Fatigue [Recovering/Resolving]
  - Dizziness [Recovering/Resolving]
  - Migraine [Recovered/Resolved]
  - Nausea [Recovering/Resolving]
  - Headache [Unknown]
  - Alopecia [Unknown]
  - Stress [Unknown]

NARRATIVE: CASE EVENT DATE: 20200710
